FAERS Safety Report 25485341 (Version 1)
Quarter: 2025Q2

REPORT INFORMATION
  Report Type: Report from Study
  Country: KR (occurrence: KR)
  Receive Date: 20250626
  Receipt Date: 20250626
  Transmission Date: 20250716
  Serious: Yes (Death)
  Sender: ABBVIE
  Company Number: KR-PFIZER INC-PV202500074370

PATIENT
  Age: 60 Year
  Sex: Male
  Weight: 67.2 kg

DRUGS (18)
  1. AVIBACTAM SODIUM\CEFTAZIDIME [Suspect]
     Active Substance: AVIBACTAM SODIUM\CEFTAZIDIME
     Indication: Pneumonia
     Route: 042
     Dates: start: 20250612
  2. MOSAPRIDE CITRATE [Concomitant]
     Active Substance: MOSAPRIDE CITRATE
     Indication: Prophylaxis
     Route: 048
     Dates: start: 20250609, end: 20250613
  3. VANCOMYCIN [Concomitant]
     Active Substance: VANCOMYCIN
     Indication: Infection
     Route: 042
     Dates: start: 20250607, end: 20250612
  4. BACTRIM [Concomitant]
     Active Substance: SULFAMETHOXAZOLE\TRIMETHOPRIM
     Indication: Infection
     Route: 042
     Dates: start: 20250515, end: 20250606
  5. PREDIPINE [Concomitant]
     Indication: Prophylaxis
     Route: 042
     Dates: start: 20250519, end: 20250615
  6. MEROPENEM [Concomitant]
     Active Substance: MEROPENEM
     Indication: Infection
     Route: 042
     Dates: start: 20250607, end: 20250612
  7. VECARON [Concomitant]
     Indication: Sedation
     Route: 042
     Dates: start: 20250525
  8. HUMALOG [Concomitant]
     Active Substance: INSULIN LISPRO
     Indication: Diabetes mellitus
     Route: 042
     Dates: start: 20250515
  9. NEXIUM [Concomitant]
     Active Substance: ESOMEPRAZOLE MAGNESIUM
     Indication: Prophylaxis
     Route: 042
     Dates: start: 20250517
  10. PERASUL [Concomitant]
     Indication: Infection
     Route: 042
     Dates: start: 20250526, end: 20250607
  11. LEVOFLOXACIN [Concomitant]
     Active Substance: LEVOFLOXACIN
     Indication: Infection
     Route: 042
     Dates: start: 20250515, end: 20250606
  12. TEICONIN [Concomitant]
     Indication: Infection
     Route: 042
     Dates: start: 20250612
  13. REMIVA [Concomitant]
     Indication: Product used for unknown indication
     Route: 042
     Dates: start: 20250515
  14. ACETPHEN PREMIX [Concomitant]
     Indication: Infection
     Route: 042
     Dates: start: 20250524, end: 20250616
  15. SOLONDO [Concomitant]
     Indication: Infection
     Route: 048
     Dates: start: 20250610, end: 20250613
  16. GASTER [Concomitant]
     Active Substance: FAMOTIDINE
     Indication: Prophylaxis
     Route: 042
     Dates: start: 20250613
  17. Q PAM [Concomitant]
     Indication: Seizure prophylaxis
     Route: 042
     Dates: start: 20250526
  18. MIDAZOLAM [Concomitant]
     Active Substance: MIDAZOLAM
     Indication: Sedation
     Route: 042
     Dates: start: 20250515

REACTIONS (1)
  - Pneumonia [Fatal]

NARRATIVE: CASE EVENT DATE: 20250617
